FAERS Safety Report 6699731-2 (Version None)
Quarter: 2010Q2

REPORT INFORMATION
  Report Type: 
  Country: None (occurrence: None)
  Receive Date: 20100428
  Receipt Date: 20100420
  Transmission Date: 20101027
  Serious: Yes (Other)
  Sender: FDA-Public Use
  Company Number: FR-JNJFOC-20100205469

PATIENT
  Age: 41 Year
  Sex: Female

DRUGS (1)
  1. HALDOL [Suspect]
     Indication: OBSESSIVE-COMPULSIVE DISORDER
     Route: 048

REACTIONS (5)
  - CARDIAC DISORDER [None]
  - FATIGUE [None]
  - PALPITATIONS [None]
  - SINUS TACHYCARDIA [None]
  - SUPRAVENTRICULAR EXTRASYSTOLES [None]
